FAERS Safety Report 19751392 (Version 1)
Quarter: 2021Q3

REPORT INFORMATION
  Report Type: Report from Study
  Country: DE (occurrence: DE)
  Receive Date: 20210826
  Receipt Date: 20210826
  Transmission Date: 20211014
  Serious: Yes (Hospitalization)
  Sender: FDA-Public Use
  Company Number: DE-ROCHE-2894110

PATIENT
  Age: 59 Year
  Sex: Male

DRUGS (5)
  1. OBINUTUZUMAB. [Suspect]
     Active Substance: OBINUTUZUMAB
     Indication: CHRONIC LYMPHOCYTIC LEUKAEMIA
     Dosage: DATE OF LAST DOSE: 22/JUL/2021.
     Route: 042
     Dates: start: 20210721
  2. PARACODIN N [Concomitant]
     Dates: start: 20210724, end: 20210725
  3. INNOHEP [Concomitant]
     Active Substance: TINZAPARIN SODIUM
     Dates: start: 20210722, end: 20210723
  4. NOVALGIN (METAMIZOLE SODIUM) [Concomitant]
     Active Substance: METAMIZOLE SODIUM
  5. NACL [Concomitant]
     Active Substance: SODIUM CHLORIDE
     Dates: start: 20210724, end: 20210726

REACTIONS (1)
  - Pancytopenia [Recovered/Resolved]

NARRATIVE: CASE EVENT DATE: 20210723
